FAERS Safety Report 26039667 (Version 2)
Quarter: 2025Q4

REPORT INFORMATION
  Report Type: Report from Study
  Country: US (occurrence: US)
  Receive Date: 20251113
  Receipt Date: 20251119
  Transmission Date: 20260118
  Serious: No
  Sender: ACADIA PHARMACEUTICALS
  Company Number: US-ACADIA PHARMACEUTICALS INC.-ACA-2025-PIM-012135

PATIENT
  Sex: Male

DRUGS (1)
  1. NUPLAZID [Suspect]
     Active Substance: PIMAVANSERIN TARTRATE
     Indication: Parkinson^s disease
     Dosage: 10 MILLIGRAM/WEEKS 1 AND 2: TAKE 1 TABLET AT BEDTIME FOR 2 WEEKS. WEEK 3 AND THEREAFTER: INCREASE TO
     Route: 048

REACTIONS (3)
  - Delusion [Unknown]
  - Condition aggravated [Unknown]
  - Underdose [Unknown]
